FAERS Safety Report 13917666 (Version 2)
Quarter: 2018Q1

REPORT INFORMATION
  Report Type: Report from Study
  Country: US (occurrence: US)
  Receive Date: 20170829
  Receipt Date: 20180302
  Transmission Date: 20180508
  Serious: Yes (Hospitalization)
  Sender: FDA-Public Use
  Company Number: US-BAYER-2017-062151

PATIENT
  Age: 67 Year
  Sex: Female

DRUGS (4)
  1. STIVARGA [Suspect]
     Active Substance: REGORAFENIB
     Indication: COLON CANCER
     Dosage: 80 MG, QID
  2. STIVARGA [Suspect]
     Active Substance: REGORAFENIB
     Indication: RETROPERITONEAL CANCER
     Dosage: 160 MG, QD
     Dates: start: 20161109
  3. STIVARGA [Suspect]
     Active Substance: REGORAFENIB
     Indication: RETROPERITONEAL CANCER
     Dosage: 160 MG, QD FOR 21 DAYS ON AND 7 DAYS OFF
  4. STIVARGA [Suspect]
     Active Substance: REGORAFENIB
     Indication: MALIGNANT PERITONEAL NEOPLASM
     Dosage: 160 MG, QD
     Dates: start: 20161109

REACTIONS (3)
  - Intervertebral disc protrusion [Not Recovered/Not Resolved]
  - Hospitalisation [Recovered/Resolved]
  - Incorrect dosage administered [None]

NARRATIVE: CASE EVENT DATE: 2016
